FAERS Safety Report 9518390 (Version 2)
Quarter: 2013Q3

REPORT INFORMATION
  Report Type: Spontaneous
  Country: US (occurrence: None)
  Receive Date: 20130910
  Receipt Date: 20130923
  Transmission Date: 20140515
  Serious: Yes (Death)
  Sender: FDA-Public Use
  Company Number: FK201304139

PATIENT
  Age: 56 Year
  Sex: Male

DRUGS (3)
  1. CISPLATIN [Suspect]
     Indication: SQUAMOUS CELL CARCINOMA
  2. DOCETAXEL [Suspect]
     Indication: SQUAMOUS CELL CARCINOMA
  3. FLUOROURACIL [Suspect]
     Indication: SQUAMOUS CELL CARCINOMA

REACTIONS (9)
  - Histiocytosis haematophagic [None]
  - Shock [None]
  - Multi-organ failure [None]
  - Acute respiratory distress syndrome [None]
  - Pyrexia [None]
  - Lethargy [None]
  - Abdominal tenderness [None]
  - Metabolic acidosis [None]
  - Lactic acidosis [None]
